FAERS Safety Report 6644588-9 (Version None)
Quarter: 2010Q1

REPORT INFORMATION
  Report Type: 
  Country: None (occurrence: None)
  Receive Date: 20100322
  Receipt Date: 20100312
  Transmission Date: 20100710
  Serious: Yes (Hospitalization)
  Sender: FDA-Public Use
  Company Number: JP-ABBOTT-09P-087-0616260-00

PATIENT
  Age: 36 Year
  Sex: Male

DRUGS (8)
  1. NORVIR [Suspect]
     Indication: HIV INFECTION
     Route: 048
     Dates: start: 20080618
  2. TRUVADA [Suspect]
     Indication: HIV INFECTION
     Route: 048
     Dates: start: 20080618, end: 20081130
  3. ATAZANAVIR [Suspect]
     Indication: HIV INFECTION
     Route: 048
     Dates: start: 20080618
  4. AZITHROMYCIN [Suspect]
     Indication: MYCOBACTERIUM AVIUM COMPLEX INFECTION
     Route: 048
     Dates: start: 20080314, end: 20090510
  5. AZITHROMYCIN [Suspect]
     Indication: OPPORTUNISTIC INFECTION PROPHYLAXIS
     Route: 048
     Dates: start: 20080314, end: 20080510
  6. ETHIONAMIDE [Suspect]
     Indication: TUBERCULOSIS
     Route: 048
     Dates: start: 20080703
  7. LAMIVUDINE/ABACAVIR (EPZICOM) [Concomitant]
     Indication: HIV INFECTION
     Route: 048
     Dates: start: 20081201
  8. LEVOFLOXACIN [Concomitant]
     Indication: MYCOBACTERIUM AVIUM COMPLEX INFECTION
     Route: 048
     Dates: start: 20080322, end: 20090130

REACTIONS (3)
  - IMMUNE RECONSTITUTION SYNDROME [None]
  - RENAL DISORDER [None]
  - TUBERCULOSIS [None]
